FAERS Safety Report 4871900-3 (Version None)
Quarter: 2006Q1

REPORT INFORMATION
  Report Type: 
  Country: None (occurrence: None)
  Receive Date: 20060104
  Receipt Date: 20051229
  Transmission Date: 20060701
  Serious: Yes (Hospitalization)
  Sender: FDA-Public Use
  Company Number: CN-BRACCO-BRO-009701

PATIENT
  Age: 67 Year
  Sex: Male

DRUGS (2)
  1. IOPAMIRO [Suspect]
     Indication: NASOPHARYNGEAL CANCER
     Route: 042
     Dates: start: 20051226, end: 20051226
  2. IOPAMIRO [Suspect]
     Route: 042
     Dates: start: 20051226, end: 20051226

REACTIONS (7)
  - BLOOD PRESSURE DECREASED [None]
  - CONJUNCTIVAL HYPERAEMIA [None]
  - DYSPNOEA [None]
  - EYELID OEDEMA [None]
  - HEADACHE [None]
  - LARYNGEAL OEDEMA [None]
  - RASH [None]
